FAERS Safety Report 6959246-0 (Version None)
Quarter: 2010Q3

REPORT INFORMATION
  Report Type: 
  Country: None (occurrence: None)
  Receive Date: 20100831
  Receipt Date: 20100820
  Transmission Date: 20110219
  Serious: Yes (Hospitalization)
  Sender: FDA-Public Use
  Company Number: JP-CELGENEUS-087-C5013-10060581

PATIENT
  Sex: Male
  Weight: 66.8 kg

DRUGS (14)
  1. LENALIDOMIDE [Suspect]
     Indication: MULTIPLE MYELOMA
     Route: 048
     Dates: start: 20091116, end: 20100530
  2. DEXAMETHASONE [Suspect]
     Indication: MULTIPLE MYELOMA
     Route: 065
     Dates: start: 20091116, end: 20100525
  3. LEVOFLOXACIN HYDRATE [Concomitant]
     Indication: PNEUMONIA
     Dates: start: 20100531, end: 20100605
  4. UREA [Concomitant]
     Indication: DRY SKIN
     Dosage: OPTIMAL DOSE
     Route: 061
     Dates: start: 20100112
  5. KETOPROFEN [Concomitant]
     Indication: MUSCLE SPASMS
     Dosage: OPTIMAL DOSE
     Route: 062
     Dates: start: 20091130
  6. PANTETHINE [Concomitant]
     Indication: CONSTIPATION
     Route: 048
     Dates: start: 20091207
  7. LOXOPROFEN SODIUM HYDRATE [Concomitant]
     Indication: HEADACHE
     Route: 065
     Dates: start: 20100607, end: 20100608
  8. ACETAMINOPHEN [Concomitant]
     Indication: PYREXIA
     Route: 048
     Dates: start: 20100530, end: 20100531
  9. ASPIRIN [Concomitant]
     Indication: DEEP VEIN THROMBOSIS
     Route: 048
     Dates: start: 20091116
  10. SODIUM ALGINATE [Concomitant]
     Indication: GASTRIC CANCER
     Route: 065
     Dates: start: 20100607
  11. COTRIM [Concomitant]
     Route: 048
     Dates: start: 20091116
  12. MAGNESIUM OXIDE [Concomitant]
     Indication: CONSTIPATION
     Route: 065
     Dates: start: 20091207
  13. PATANOL [Concomitant]
     Indication: CONJUNCTIVITIS
     Dosage: OPTIMAL DOSE
     Route: 031
     Dates: start: 20100112
  14. BETAMETHASONE BUTYRATE PROPIONATE [Concomitant]
     Indication: RASH
     Dosage: OPTIMAL DOSE
     Route: 061
     Dates: start: 20100305

REACTIONS (2)
  - CHOLECYSTITIS [None]
  - GASTRIC CANCER [None]
